FAERS Safety Report 24189887 (Version 2)
Quarter: 2024Q3

REPORT INFORMATION
  Report Type: Spontaneous
  Country: US (occurrence: US)
  Receive Date: 20240808
  Receipt Date: 20240827
  Transmission Date: 20241016
  Serious: Yes (Other)
  Sender: CHIESI
  Company Number: US-CHIESI-2024CHF03777

PATIENT
  Age: 42 Year
  Sex: Female

DRUGS (1)
  1. ELFABRIO [Suspect]
     Active Substance: PEGUNIGALSIDASE ALFA-IWXJ
     Indication: Fabry^s disease
     Dosage: UNK UNK, QOW
     Route: 042
     Dates: start: 20240516

REACTIONS (6)
  - Renal disorder [Unknown]
  - Thyroid mass [Unknown]
  - Condition aggravated [Unknown]
  - Ligament sprain [Unknown]
  - Weight decreased [Unknown]
  - Therapeutic response unexpected [Recovered/Resolved]

NARRATIVE: CASE EVENT DATE: 20240101
